FAERS Safety Report 14479802 (Version 1)
Quarter: 2018Q1

REPORT INFORMATION
  Report Type: Spontaneous
  Country: US (occurrence: US)
  Receive Date: 20180201
  Receipt Date: 20180201
  Transmission Date: 20180509
  Serious: No
  Sender: FDA-Public Use
  Company Number: None

PATIENT
  Age: 28 Year
  Sex: Female

DRUGS (1)
  1. STELARA [Suspect]
     Active Substance: USTEKINUMAB
     Dosage: 90MG Q8WEEKS SUBQ
     Route: 058

REACTIONS (2)
  - Alopecia [None]
  - Hair texture abnormal [None]

NARRATIVE: CASE EVENT DATE: 20180201
